FAERS Safety Report 6121124-7 (Version None)
Quarter: 2009Q1

REPORT INFORMATION
  Report Type: 
  Country: None (occurrence: None)
  Receive Date: 20090317
  Receipt Date: 20090306
  Transmission Date: 20090719
  Serious: Yes (Hospitalization)
  Sender: FDA-Public Use
  Company Number: A0773192A

PATIENT
  Age: 78 Year
  Sex: Male
  Weight: 93.2 kg

DRUGS (8)
  1. AVANDIA [Suspect]
     Indication: DIABETES MELLITUS
     Dosage: 4MG TWICE PER DAY
     Route: 048
     Dates: start: 20040401, end: 20070505
  2. METFORMIN HCL [Concomitant]
  3. AMARYL [Concomitant]
  4. GLYBURIDE [Concomitant]
  5. COUMADIN [Concomitant]
  6. DIGOXIN [Concomitant]
  7. GEMFIBROZIL [Concomitant]
  8. NEXIUM [Concomitant]

REACTIONS (2)
  - ARTERIOSCLEROSIS [None]
  - CEREBROVASCULAR ACCIDENT [None]
